FAERS Safety Report 7030862-3 (Version None)
Quarter: 2010Q4

REPORT INFORMATION
  Report Type: 
  Country: None (occurrence: None)
  Receive Date: 20101006
  Receipt Date: 20100929
  Transmission Date: 20110411
  Serious: Yes (Other)
  Sender: FDA-Public Use
  Company Number: DE-MERCK-1009DEU00130

PATIENT
  Age: 68 Year
  Sex: Female

DRUGS (5)
  1. JANUVIA [Suspect]
     Route: 048
     Dates: start: 20090101
  2. DIGITOXIN [Concomitant]
     Route: 065
  3. BISOPROLOL [Concomitant]
     Route: 065
  4. REPAGLINIDE [Concomitant]
     Route: 065
  5. PHENPROCOUMON [Concomitant]
     Route: 065

REACTIONS (1)
  - AMYOTROPHIC LATERAL SCLEROSIS [None]
